FAERS Safety Report 4537091-3 (Version None)
Quarter: 2004Q4

REPORT INFORMATION
  Report Type: 
  Country: None (occurrence: None)
  Receive Date: 20041223
  Receipt Date: 20040421
  Transmission Date: 20050328
  Serious: Yes (Hospitalization)
  Sender: FDA-Public Use
  Company Number: JP-GLAXOSMITHKLINE-B0361773A

PATIENT
  Age: 30 Year
  Sex: Female

DRUGS (6)
  1. IMIGRAN [Suspect]
     Indication: MIGRAINE
     Dosage: 50MG SINGLE DOSE
     Route: 048
     Dates: start: 20040421, end: 20040421
  2. ADJUST A [Concomitant]
     Indication: CONSTIPATION
     Dosage: 3 PER DAY
     Route: 048
     Dates: start: 20040708
  3. FERROMIA (SODIUM FERROUS CITRATE) [Concomitant]
     Indication: ANAEMIA
     Dosage: 2UNIT PER DAY
     Route: 048
     Dates: start: 20040708
  4. ISALON [Concomitant]
     Indication: GASTRITIS
     Dosage: 2 PER DAY
     Route: 048
     Dates: start: 20040724
  5. INCREMIN [Concomitant]
     Indication: ANAEMIA
     Route: 048
     Dates: start: 20040724
  6. UTEMERIN [Concomitant]
     Indication: THREATENED LABOUR
     Dosage: 3 PER DAY
     Route: 048
     Dates: start: 20040924, end: 20041001

REACTIONS (2)
  - DRUG EXPOSURE DURING PREGNANCY [None]
  - PREMATURE RUPTURE OF MEMBRANES [None]
